FAERS Safety Report 9349726 (Version 2)
Quarter: 2013Q3

REPORT INFORMATION
  Report Type: Report from Study
  Country: CH (occurrence: CH)
  Receive Date: 20130614
  Receipt Date: 20130701
  Transmission Date: 20140515
  Serious: Yes (Other)
  Sender: FDA-Public Use
  Company Number: CH-VERTEX PHARMACEUTICALS INC-2013-007102

PATIENT
  Age: 59 Year
  Sex: Male

DRUGS (8)
  1. INCIVO [Suspect]
     Indication: CHRONIC HEPATITIS C
     Dates: start: 20111217, end: 20120310
  2. PEGASYS [Suspect]
     Indication: CHRONIC HEPATITIS C
     Dosage: 180 ?G, QW
  3. COPEGUS [Suspect]
     Indication: CHRONIC HEPATITIS C
     Dosage: 1200 MG, QD
  4. DAFALGAN [Concomitant]
     Dosage: 1 DF, PRN
  5. NEBILET [Concomitant]
     Dosage: 2.5 MG, QD
  6. CO-DIOVAN [Concomitant]
     Dosage: DOSAGE FORM: UNSPECIFIED
     Route: 065
  7. MALTOFER [Concomitant]
     Dosage: 1 DF, QD
  8. FOLICUM ACIDUM [Concomitant]
     Dosage: 5 MG, TID

REACTIONS (5)
  - Anaemia [Recovered/Resolved]
  - Orchitis [Recovered/Resolved]
  - Leukopenia [Recovered/Resolved]
  - Fatigue [Recovered/Resolved]
  - Pruritus [Recovered/Resolved]
